FAERS Safety Report 15861035 (Version 2)
Quarter: 2022Q1

REPORT INFORMATION
  Report Type: Spontaneous
  Country: PT (occurrence: PT)
  Receive Date: 20190124
  Receipt Date: 20220319
  Transmission Date: 20220424
  Serious: Yes (Hospitalization, Other)
  Sender: FDA-Public Use
  Company Number: PT-AUROBINDO-AUR-APL-2019-002752

PATIENT
  Age: 48 Year
  Sex: Female

DRUGS (3)
  1. ARIPIPRAZOLE [Suspect]
     Active Substance: ARIPIPRAZOLE
     Indication: Depression
     Dosage: 10 MILLIGRAM, DAILY
     Route: 065
  2. BROMAZEPAM [Concomitant]
     Active Substance: BROMAZEPAM
     Indication: Depression
     Dosage: 6 MILLIGRAM, 3 TIMES A DAY
     Route: 065
  3. CLOMIPRAMINE [Concomitant]
     Active Substance: CLOMIPRAMINE
     Indication: Depression
     Dosage: 75 MILLIGRAM, DAILY
     Route: 065

REACTIONS (5)
  - Haemolytic anaemia [Recovered/Resolved]
  - Leukocytosis [Unknown]
  - Hyperbilirubinaemia [Unknown]
  - Weight decreased [Unknown]
  - Thrombocytosis [Unknown]
